FAERS Safety Report 15762472 (Version 1)
Quarter: 2018Q4

REPORT INFORMATION
  Report Type: Spontaneous
  Country: FR (occurrence: FR)
  Receive Date: 20181226
  Receipt Date: 20181226
  Transmission Date: 20190205
  Serious: Yes (Other)
  Sender: FDA-Public Use
  Company Number: FR-PFIZER INC-2018519793

PATIENT
  Age: 37 Year
  Sex: Male

DRUGS (2)
  1. SURGAM [Suspect]
     Active Substance: TIAPROFENIC ACID
     Indication: TOOTHACHE
     Dosage: 1 DF, SINGLE
     Route: 048
     Dates: start: 2018, end: 2018
  2. IBUPROFEN. [Suspect]
     Active Substance: IBUPROFEN
     Indication: TOOTHACHE
     Dosage: 1 DF, SINGLE
     Route: 048
     Dates: start: 2018, end: 2018

REACTIONS (2)
  - Pruritus [Recovered/Resolved]
  - Rash [Recovered/Resolved]

NARRATIVE: CASE EVENT DATE: 2018
